FAERS Safety Report 8221440-9 (Version None)
Quarter: 2012Q1

REPORT INFORMATION
  Report Type: 
  Country: None (occurrence: None)
  Receive Date: 20120320
  Receipt Date: 20120315
  Transmission Date: 20120608
  Serious: Yes (Other)
  Sender: FDA-Public Use
  Company Number: US-PFIZER INC-2011282799

PATIENT
  Sex: Female

DRUGS (4)
  1. CARISOPRODOL [Concomitant]
     Indication: MUSCLE RELAXANT THERAPY
     Dosage: UNK
     Dates: start: 19750101, end: 20110901
  2. CHANTIX [Suspect]
     Dosage: UNK
     Dates: start: 20081201, end: 20090701
  3. CHANTIX [Suspect]
     Indication: SMOKING CESSATION THERAPY
     Dosage: UNK
     Dates: start: 20080801
  4. OXYBUTYNIN [Concomitant]
     Indication: HYPERTONIC BLADDER
     Dosage: UNK
     Dates: start: 20070101

REACTIONS (4)
  - DEPRESSION [None]
  - ABNORMAL DREAMS [None]
  - NIGHTMARE [None]
  - ANXIETY [None]
